FAERS Safety Report 8050141-5 (Version None)
Quarter: 2012Q1

REPORT INFORMATION
  Report Type: 
  Country: None (occurrence: None)
  Receive Date: 20120117
  Receipt Date: 20120112
  Transmission Date: 20120608
  Serious: Yes (Death)
  Sender: FDA-Public Use
  Company Number: FR-MERCK-1201FRA00034

PATIENT
  Age: 78 Year
  Sex: Female

DRUGS (7)
  1. METFORMIN PAMOATE [Concomitant]
     Route: 065
  2. ALLOPURINOL [Concomitant]
     Route: 065
  3. JANUVIA [Suspect]
     Route: 048
     Dates: start: 20090101
  4. BETAMETHASONE DIPROPIONATE [Concomitant]
     Indication: SKIN EXFOLIATION
     Route: 061
  5. LOPERAMIDE HYDROCHLORIDE [Concomitant]
     Route: 048
  6. CHONDROITIN SULFATE SODIUM [Concomitant]
     Indication: OSTEOARTHRITIS
     Route: 048
  7. METOPROLOL TARTRATE [Concomitant]
     Indication: HYPERTENSION
     Route: 048

REACTIONS (8)
  - FATIGUE [None]
  - VOMITING [None]
  - ABDOMINAL PAIN [None]
  - FALL [None]
  - NAUSEA [None]
  - YELLOW SKIN [None]
  - SUDDEN DEATH [None]
  - UPPER GASTROINTESTINAL HAEMORRHAGE [None]
